FAERS Safety Report 5890717-4 (Version None)
Quarter: 2008Q3

REPORT INFORMATION
  Report Type: 
  Country: None (occurrence: None)
  Receive Date: 20080922
  Receipt Date: 20080915
  Transmission Date: 20090109
  Serious: Yes (Other)
  Sender: FDA-Public Use
  Company Number: US-AMGEN-KDL302750

PATIENT
  Age: 10 Year
  Sex: Male
  Weight: 33.1 kg

DRUGS (4)
  1. PROCRIT [Suspect]
     Indication: PREMATURE BABY
     Route: 065
     Dates: start: 19980901
  2. PROZAC [Concomitant]
  3. BUSPAR [Concomitant]
  4. MURELAX [Concomitant]

REACTIONS (6)
  - ABNORMAL BEHAVIOUR [None]
  - ANXIETY [None]
  - ASTHMA [None]
  - ATTENTION DEFICIT/HYPERACTIVITY DISORDER [None]
  - PITUITARY TUMOUR [None]
  - PRECOCIOUS PUBERTY [None]
